FAERS Safety Report 19918430 (Version 1)
Quarter: 2021Q4

REPORT INFORMATION
  Report Type: Spontaneous
  Country: CN (occurrence: CN)
  Receive Date: 20211004
  Receipt Date: 20211004
  Transmission Date: 20220303
  Serious: Yes (Hospitalization, Other)
  Sender: FDA-Public Use
  Company Number: CN-PFIZER INC-202101265941

PATIENT
  Age: 63 Year
  Sex: Female
  Weight: 50.3 kg

DRUGS (9)
  1. VENLAFAXINE HYDROCHLORIDE [Suspect]
     Active Substance: VENLAFAXINE HYDROCHLORIDE
     Indication: Depression
     Dosage: 75 MG, DAILY
     Dates: start: 20210902
  2. VENLAFAXINE HYDROCHLORIDE [Suspect]
     Active Substance: VENLAFAXINE HYDROCHLORIDE
     Dosage: 150.0 MG, 1X/DAY
     Route: 048
     Dates: end: 20210924
  3. OLANZAPINE [Suspect]
     Active Substance: OLANZAPINE
     Indication: Depression
     Dosage: 5.0 MG, 1X/DAY
     Route: 048
     Dates: start: 20210902, end: 20210924
  4. ESCITALOPRAM OXALATE [Concomitant]
     Active Substance: ESCITALOPRAM OXALATE
     Indication: Depression
     Dosage: 10.0 MG, 1X/DAY
     Route: 048
     Dates: start: 20210902, end: 20210924
  5. ZOLPIDEM TARTRATE [Concomitant]
     Active Substance: ZOLPIDEM TARTRATE
     Indication: Depression
     Dosage: 10.0 MG, 1X/DAY
     Route: 048
     Dates: start: 20210902, end: 20210924
  6. DEXTROSE [Concomitant]
     Active Substance: DEXTROSE
     Indication: Poor quality sleep
     Dosage: 250 MG, DAILY
     Route: 041
  7. DEXTROSE [Concomitant]
     Active Substance: DEXTROSE
     Indication: Affective disorder
  8. DIAZEPAM [Concomitant]
     Active Substance: DIAZEPAM
     Indication: Affective disorder
     Dosage: 5 MG
     Route: 041
  9. DIAZEPAM [Concomitant]
     Active Substance: DIAZEPAM
     Indication: Poor quality sleep

REACTIONS (2)
  - Hypokalaemia [Recovered/Resolved]
  - White blood cell count decreased [Recovered/Resolved]

NARRATIVE: CASE EVENT DATE: 20210908
